FAERS Safety Report 6593528-X (Version None)
Quarter: 2010Q1

REPORT INFORMATION
  Report Type: 
  Country: None (occurrence: None)
  Receive Date: 20100222
  Receipt Date: 20090623
  Transmission Date: 20100710
  Serious: No
  Sender: FDA-Public Use
  Company Number: US-BRISTOL-MYERS SQUIBB COMPANY-14677595

PATIENT
  Age: 68 Year
  Sex: Female

DRUGS (8)
  1. ORENCIA [Suspect]
     Indication: RHEUMATOID ARTHRITIS
     Dosage: TAKEN FIRST INFUSION, 3 VIALS-LOT NUMBER 9A55969, EXPIRATION DATE: 2011
  2. CELEBREX [Concomitant]
  3. NEXIUM [Concomitant]
  4. CENESTIN [Concomitant]
  5. MULTI-VITAMIN [Concomitant]
  6. TOPROL-XL [Concomitant]
  7. TRIAMTERENE AND HYDROCHLOROTHIAZIDE [Concomitant]
  8. LYRICA [Concomitant]

REACTIONS (2)
  - COUGH [None]
  - URTICARIA [None]
